FAERS Safety Report 14015916 (Version 1)
Quarter: 2017Q3

REPORT INFORMATION
  Report Type: Report from Study
  Country: US (occurrence: US)
  Receive Date: 20170927
  Receipt Date: 20170927
  Transmission Date: 20171128
  Serious: Yes (Death)
  Sender: FDA-Public Use
  Company Number: US-PFIZER INC-2017415100

PATIENT
  Age: 69 Year
  Sex: Male

DRUGS (3)
  1. AMLODIPINE BESILATE [Suspect]
     Active Substance: AMLODIPINE BESYLATE
     Dosage: UNK
  2. ACETAMINOPHEN. [Suspect]
     Active Substance: ACETAMINOPHEN
     Dosage: UNK
  3. OXYCODONE [Suspect]
     Active Substance: OXYCODONE
     Dosage: UNK

REACTIONS (15)
  - Hypotension [Fatal]
  - Pancreatitis [Fatal]
  - Tachycardia [Fatal]
  - Anion gap [Fatal]
  - Toxicity to various agents [Fatal]
  - Pneumonia aspiration [Fatal]
  - Respiratory depression [Fatal]
  - Coagulopathy [Fatal]
  - Acute kidney injury [Fatal]
  - Metabolic acidosis [Fatal]
  - Coma [Fatal]
  - Hypoglycaemia [Fatal]
  - Hepatotoxicity [Fatal]
  - Thrombocytopenia [Fatal]
  - Leukocytosis [Fatal]
